FAERS Safety Report 4774531-9 (Version None)
Quarter: 2005Q3

REPORT INFORMATION
  Report Type: 
  Country: None (occurrence: None)
  Receive Date: 20050919
  Receipt Date: 20050919
  Transmission Date: 20060218
  Serious: Yes (Hospitalization)
  Sender: FDA-Public Use
  Company Number: None

PATIENT
  Age: 49 Year
  Sex: Female
  Weight: 116 kg

DRUGS (17)
  1. DROTRECOGIN ALFA 24 MCG/KG/MIN LILLY [Suspect]
     Indication: SEPTIC SHOCK
     Dosage: 24 MCG/KG/MIN X 96 HRS IV DRIP
     Route: 041
     Dates: start: 20050830, end: 20050902
  2. VANCOMYCIN [Concomitant]
  3. TOBRAMYCIN [Concomitant]
  4. HYDROCORTISONE [Concomitant]
  5. CIPROFLOXACIN [Concomitant]
  6. METRONIDAZOLE [Concomitant]
  7. RANITIDINE [Concomitant]
  8. PANTOPRAZOLE [Concomitant]
  9. HEPARIN [Concomitant]
  10. NEOSYNEPHRINE [Concomitant]
  11. NOREPINEPHRINE [Concomitant]
  12. VASOPRESSIN [Concomitant]
  13. PROPOFOL [Concomitant]
  14. INSULIN DRIP [Concomitant]
  15. LORAZEPAM [Concomitant]
  16. FENTANYL [Concomitant]
  17. MIDAZOLAM [Concomitant]

REACTIONS (2)
  - ECCHYMOSIS [None]
  - TOXIC EPIDERMAL NECROLYSIS [None]
